FAERS Safety Report 7528750-9 (Version None)
Quarter: 2011Q2

REPORT INFORMATION
  Report Type: 
  Country: None (occurrence: None)
  Receive Date: 20110607
  Receipt Date: 20100726
  Transmission Date: 20111010
  Serious: No
  Sender: FDA-Public Use
  Company Number: US-ASTRAZENECA-2010SE35656

PATIENT
  Age: 80 Year
  Sex: Female

DRUGS (7)
  1. SYNTHROID [Concomitant]
     Dosage: UNKNOWN
  2. GENTRAN [Concomitant]
     Dosage: UNKNOWN
  3. VITAMIN D [Concomitant]
     Dosage: UNKNOWN
  4. VASOTEC [Concomitant]
     Dosage: UNKNOWN
  5. PRAVACHOL [Concomitant]
     Dosage: UNKNOWN
  6. VERTIGO [Concomitant]
     Dosage: UNKNOWN
  7. PRILOSEC OTC [Suspect]
     Indication: GASTROOESOPHAGEAL REFLUX DISEASE
     Route: 048
     Dates: start: 20100401

REACTIONS (3)
  - MUSCLE SPASMS [None]
  - PAIN IN EXTREMITY [None]
  - BACK PAIN [None]
